FAERS Safety Report 5807260-0 (Version None)
Quarter: 2008Q3

REPORT INFORMATION
  Report Type: 
  Country: None (occurrence: None)
  Receive Date: 20080709
  Receipt Date: 20080709
  Transmission Date: 20090109
  Serious: Yes (Other)
  Sender: FDA-Public Use
  Company Number: None

PATIENT
  Age: 41 Year
  Sex: Female
  Weight: 58.9676 kg

DRUGS (1)
  1. LOESTRIN 24 FE [Suspect]
     Indication: CONTRACEPTION
     Dosage: ONE PILL ONCE DAILY PO
     Route: 048
     Dates: start: 20080504, end: 20080630

REACTIONS (5)
  - CONTUSION [None]
  - PAIN [None]
  - PRURITUS [None]
  - RASH GENERALISED [None]
  - SCRATCH [None]
